FAERS Safety Report 8271763-2 (Version None)
Quarter: 2012Q2

REPORT INFORMATION
  Report Type: 
  Country: None (occurrence: None)
  Receive Date: 20120410
  Receipt Date: 20120305
  Transmission Date: 20120825
  Serious: No
  Sender: FDA-Public Use
  Company Number: US-BAUSCH-2012BL001632

PATIENT
  Age: 60 Year
  Sex: Female

DRUGS (2)
  1. ZIRGAN [Suspect]
     Indication: EYE INFECTION
     Route: 047
     Dates: start: 20120301, end: 20120302
  2. ZIRGAN [Suspect]
     Route: 047
     Dates: start: 20120303, end: 20120303

REACTIONS (2)
  - VISION BLURRED [None]
  - ABDOMINAL PAIN [None]
